FAERS Safety Report 25950286 (Version 2)
Quarter: 2025Q4

REPORT INFORMATION
  Report Type: Spontaneous
  Country: US (occurrence: US)
  Receive Date: 20251022
  Receipt Date: 20251204
  Transmission Date: 20260117
  Serious: No
  Sender: SANDOZ
  Company Number: US-SANDOZ-SDZ2025US077706

PATIENT
  Sex: Female

DRUGS (2)
  1. GLATOPA [Suspect]
     Active Substance: GLATIRAMER ACETATE
     Indication: Product used for unknown indication
     Dosage: GLATIRAMER ACET INJ 40MG/ML 12LISY USNDC: 781325089S, FREQUENCY: 3 TIMES A WEEK (MONDAY, WEDNESDAY A
     Route: 065
  2. GLATOPA [Suspect]
     Active Substance: GLATIRAMER ACETATE
     Dosage: GLATIRAMER ACET INJ 40MG/ML 12LISY USNDC: 781325089S, , FREQUENCY: 3 TIMES A WEEK (MONDAY, WEDNESDAY
     Route: 065

REACTIONS (2)
  - Circumstance or information capable of leading to device use error [Unknown]
  - Device breakage [Unknown]
